FAERS Safety Report 16094319 (Version 1)
Quarter: 2019Q1

REPORT INFORMATION
  Report Type: Spontaneous
  Country: US (occurrence: US)
  Receive Date: 20190320
  Receipt Date: 20190320
  Transmission Date: 20190418
  Serious: No
  Sender: FDA-Public Use
  Company Number: US-BAYER-2019-054671

PATIENT
  Age: 90 Year
  Sex: Male
  Weight: 93 kg

DRUGS (4)
  1. MIRALAX [Suspect]
     Active Substance: POLYETHYLENE GLYCOL 3350
     Indication: CONSTIPATION
     Dosage: 1 DF, Q72HR
     Route: 048
  2. BAYER ASPIRIN [Suspect]
     Active Substance: ASPIRIN
     Indication: ISCHAEMIC HEART DISEASE PROPHYLAXIS
     Dosage: 1 DF
     Route: 048
  3. METFORMIN [Concomitant]
     Active Substance: METFORMIN HYDROCHLORIDE
     Indication: HYPERTENSION
  4. WATER. [Concomitant]
     Active Substance: WATER
     Indication: FLUID RETENTION

REACTIONS (2)
  - Product use in unapproved indication [None]
  - Drug ineffective [Unknown]
